FAERS Safety Report 10061761 (Version 1)
Quarter: 2014Q2

REPORT INFORMATION
  Report Type: Spontaneous
  Country: CN (occurrence: None)
  Receive Date: 20140403
  Receipt Date: 20140403
  Transmission Date: 20141212
  Serious: Yes (Other)
  Sender: FDA-Public Use
  Company Number: IPC201403-000118

PATIENT
  Age: 29 Year
  Sex: Female

DRUGS (2)
  1. WARFARIN [Suspect]
  2. HEPARIN [Suspect]
     Route: 042

REACTIONS (6)
  - Cardiac murmur [None]
  - Aortic dilatation [None]
  - Blood pressure diastolic decreased [None]
  - Peritoneal haemorrhage [None]
  - Haemoglobin decreased [None]
  - Splenic rupture [None]
